FAERS Safety Report 10032274 (Version 3)
Quarter: 2014Q2

REPORT INFORMATION
  Report Type: Report from Study
  Country: FR (occurrence: FR)
  Receive Date: 20140324
  Receipt Date: 20140507
  Transmission Date: 20141212
  Serious: Yes (Other)
  Sender: FDA-Public Use
  Company Number: FR-AMGEN-FRACT2014019072

PATIENT
  Age: 76 Year
  Sex: Female
  Weight: 84 kg

DRUGS (6)
  1. PANITUMUMAB [Suspect]
     Indication: OESOPHAGEAL ADENOCARCINOMA
     Dosage: 500 MG, UNK
     Route: 042
     Dates: start: 20130319
  2. OXALIPLATIN [Concomitant]
     Indication: OESOPHAGEAL ADENOCARCINOMA
     Dosage: 162.5 MG, UNK
     Route: 042
     Dates: start: 20130319
  3. FLOUROURACIL [Concomitant]
     Indication: OESOPHAGEAL ADENOCARCINOMA
     Dosage: 5350 MG, UNK
     Route: 042
     Dates: start: 20130319
  4. LEVOFOLINATE [Concomitant]
     Indication: OESOPHAGEAL ADENOCARCINOMA
     Dosage: UNK
     Dates: start: 20130319
  5. KALEROID [Concomitant]
     Indication: HYPOKALAEMIA
     Dosage: UNK
     Dates: start: 20130501
  6. TOLEXINE                           /00055701/ [Concomitant]
     Indication: RASH
     Dosage: UNK
     Dates: start: 20130606

REACTIONS (1)
  - Neutropenia [Recovered/Resolved]
